FAERS Safety Report 24721079 (Version 1)
Quarter: 2024Q4

REPORT INFORMATION
  Report Type: Report from Study
  Country: US (occurrence: US)
  Receive Date: 20241211
  Receipt Date: 20241211
  Transmission Date: 20250114
  Serious: Yes (Hospitalization)
  Sender: MYLAN
  Company Number: US-MYLANLABS-2024M1109447

PATIENT
  Sex: Female
  Weight: 65.3 kg

DRUGS (1)
  1. LYRICA [Suspect]
     Active Substance: PREGABALIN
     Indication: Product used for unknown indication
     Dosage: 25 MILLIGRAM, BID (TAKE 1 CAPSULE (25 MG) BY MOUTH IN THE MORNING AND AT BEDTIME)
     Route: 048

REACTIONS (3)
  - Back pain [Unknown]
  - Hypersensitivity [Unknown]
  - Off label use [Unknown]
